FAERS Safety Report 10993998 (Version 1)
Quarter: 2015Q2

REPORT INFORMATION
  Report Type: Spontaneous
  Country: None (occurrence: None)
  Receive Date: 20150406
  Receipt Date: 20150406
  Transmission Date: 20150821
  Serious: Yes (Disabling)
  Sender: FDA-Public Use
  Company Number: None

PATIENT
  Age: 60 Year
  Sex: Female

DRUGS (5)
  1. VITAMIN C [Concomitant]
     Active Substance: ASCORBIC ACID
  2. FISH OIL [Concomitant]
     Active Substance: FISH OIL
  3. VIT B COMPLEX [Concomitant]
  4. CIPRO [Suspect]
     Active Substance: CIPROFLOXACIN HYDROCHLORIDE
     Indication: CYSTITIS
  5. IRON [Concomitant]
     Active Substance: IRON

REACTIONS (6)
  - Gait disturbance [None]
  - Eyelid ptosis [None]
  - Pain [None]
  - Fatigue [None]
  - Tendon disorder [None]
  - Asthenia [None]

NARRATIVE: CASE EVENT DATE: 20150220
